FAERS Safety Report 5334392-6 (Version None)
Quarter: 2007Q2

REPORT INFORMATION
  Report Type: 
  Country: None (occurrence: None)
  Receive Date: 20070525
  Receipt Date: 20070514
  Transmission Date: 20071010
  Serious: Yes (Hospitalization)
  Sender: FDA-Public Use
  Company Number: SE-BRISTOL-MYERS SQUIBB COMPANY-13788583

PATIENT
  Age: 78 Year
  Sex: Female

DRUGS (10)
  1. GLUCOPHAGE [Suspect]
     Indication: DIABETES MELLITUS
     Route: 048
     Dates: end: 20070217
  2. ATACAND [Suspect]
     Indication: ATRIAL FIBRILLATION
     Route: 048
     Dates: start: 20070205, end: 20070217
  3. BRICANYL [Concomitant]
  4. PULMICORT [Concomitant]
  5. PROPAVAN [Concomitant]
     Route: 048
  6. IMPUGAN [Concomitant]
     Route: 048
  7. TENORMIN [Concomitant]
     Route: 048
  8. PLENDIL [Concomitant]
     Route: 048
  9. SIMVASTATIN [Concomitant]
  10. TROMBYL [Concomitant]

REACTIONS (10)
  - ATRIAL FIBRILLATION [None]
  - BLOOD CREATININE INCREASED [None]
  - BLOOD GLUCOSE INCREASED [None]
  - C-REACTIVE PROTEIN INCREASED [None]
  - CONDITION AGGRAVATED [None]
  - DYSPNOEA [None]
  - FATIGUE [None]
  - GENERAL PHYSICAL HEALTH DETERIORATION [None]
  - PNEUMONIA [None]
  - WEIGHT INCREASED [None]
